FAERS Safety Report 8551995-6 (Version None)
Quarter: 2012Q3

REPORT INFORMATION
  Report Type: 
  Country: None (occurrence: None)
  Receive Date: 20120730
  Receipt Date: 20120723
  Transmission Date: 20120928
  Serious: Yes (Hospitalization, Other)
  Sender: FDA-Public Use
  Company Number: US-RB-042746-12

PATIENT
  Sex: Male
  Weight: 2.5 kg

DRUGS (6)
  1. SUBOXONE [Suspect]
     Indication: DRUG DEPENDENCE
     Route: 064
     Dates: start: 20110101
  2. NICOTINE [Suspect]
     Dosage: 1/2 PACK PER DAY
     Route: 063
     Dates: start: 20110920, end: 20110922
  3. NICOTINE [Suspect]
     Indication: NICOTINE DEPENDENCE
     Dosage: 1/2 PACK DAILY
     Route: 064
     Dates: end: 20110920
  4. BUPRENORPHINE [Suspect]
     Indication: DRUG DEPENDENCE
     Route: 064
     Dates: end: 20110920
  5. BUPRENORPHINE [Suspect]
     Route: 063
     Dates: start: 20110920, end: 20110922
  6. MULTI-VITAMINS [Suspect]
     Indication: PREGNANCY
     Dosage: ONE DAILY
     Route: 064
     Dates: end: 20110920

REACTIONS (5)
  - FOETAL EXPOSURE DURING PREGNANCY [None]
  - LOW BIRTH WEIGHT BABY [None]
  - DRUG WITHDRAWAL SYNDROME NEONATAL [None]
  - EXPOSURE DURING BREAST FEEDING [None]
  - PREMATURE BABY [None]
